FAERS Safety Report 20722152 (Version 4)
Quarter: 2025Q4

REPORT INFORMATION
  Report Type: Report from Study
  Country: GB (occurrence: GB)
  Receive Date: 20220418
  Receipt Date: 20251210
  Transmission Date: 20260117
  Serious: Yes (Hospitalization, Other)
  Sender: KYOWA
  Company Number: GB-KYOWAKIRIN-2022BKK005240

PATIENT

DRUGS (5)
  1. BUROSUMAB [Suspect]
     Active Substance: BUROSUMAB
     Indication: Hereditary hypophosphataemic rickets
     Dosage: 5 MG, 1X/2 WEEKS
     Route: 065
     Dates: start: 20200310, end: 20210505
  2. BUROSUMAB [Suspect]
     Active Substance: BUROSUMAB
     Dosage: 10 MG, 1X/2 WEEKS
     Route: 065
     Dates: start: 20200505, end: 202107
  3. BUROSUMAB [Suspect]
     Active Substance: BUROSUMAB
     Dosage: 15 MG, 1X/2 WEEKS
     Route: 065
     Dates: start: 202107, end: 20231219
  4. BUROSUMAB [Suspect]
     Active Substance: BUROSUMAB
     Dosage: 20 MG, 1X/2 WEEKS
     Route: 065
     Dates: start: 20231219
  5. PIZOTYLINE [Concomitant]
     Active Substance: PIZOTYLINE
     Indication: Headache
     Dosage: 999.99 AS NEEDED (PRN)
     Route: 048
     Dates: start: 20251118

REACTIONS (1)
  - Migraine [Recovered/Resolved]

NARRATIVE: CASE EVENT DATE: 20210901
